FAERS Safety Report 9929018 (Version 1)
Quarter: 2014Q1

REPORT INFORMATION
  Report Type: Report from Study
  Country: US (occurrence: US)
  Receive Date: 20140227
  Receipt Date: 20140227
  Transmission Date: 20141002
  Serious: Yes (Hospitalization, Other)
  Sender: FDA-Public Use
  Company Number: US-ABBVIE-14P-163-1203345-00

PATIENT
  Age: 71 Year
  Sex: Male
  Weight: 86.26 kg

DRUGS (21)
  1. HUMIRA [Suspect]
     Indication: RHEUMATOID ARTHRITIS
     Dates: start: 2004, end: 2010
  2. HUMIRA [Suspect]
     Indication: RHEUMATOID ARTHRITIS
     Dates: start: 2010
  3. HUMIRA [Suspect]
  4. CIMZIA [Suspect]
     Indication: RHEUMATOID ARTHRITIS
     Dates: start: 2013
  5. DIOVAN [Concomitant]
     Indication: HYPERTENSION
  6. VICODIN [Concomitant]
     Indication: PAIN
     Dosage: 5/500MG
  7. MOBIC [Concomitant]
     Indication: RHEUMATOID ARTHRITIS
  8. IMDUR [Concomitant]
     Indication: HYPERTENSION
  9. KLOR CON [Concomitant]
     Indication: MINERAL SUPPLEMENTATION
     Dosage: M, W, F
  10. LASIX [Concomitant]
     Indication: FLUID RETENTION
     Dosage: M,W,F
  11. ARICEPT [Concomitant]
     Indication: PRODUCT USED FOR UNKNOWN INDICATION
  12. PRILOSEC [Concomitant]
     Indication: PRODUCT USED FOR UNKNOWN INDICATION
  13. FOLIC ACID [Concomitant]
     Indication: PRODUCT USED FOR UNKNOWN INDICATION
  14. ZYRTEC [Concomitant]
     Indication: HYPERSENSITIVITY
  15. TYLENOL [Concomitant]
     Indication: PRODUCT USED FOR UNKNOWN INDICATION
  16. PRAVACHOL [Concomitant]
     Indication: BLOOD CHOLESTEROL INCREASED
     Dosage: AT BEDTIME
  17. PLAVIX [Concomitant]
     Indication: PRODUCT USED FOR UNKNOWN INDICATION
  18. ASPIRIN [Concomitant]
     Indication: PRODUCT USED FOR UNKNOWN INDICATION
  19. NITROGLYCERIN [Concomitant]
     Indication: PRODUCT USED FOR UNKNOWN INDICATION
     Route: 060
  20. ROBITUSSIN [Concomitant]
     Indication: COUGH
  21. BETAPACE [Concomitant]
     Indication: ATRIAL FIBRILLATION

REACTIONS (9)
  - Sleep apnoea syndrome [Not Recovered/Not Resolved]
  - Atrial fibrillation [Recovered/Resolved]
  - Atrial fibrillation [Recovered/Resolved]
  - Myocardial infarction [Recovered/Resolved]
  - Interstitial lung disease [Not Recovered/Not Resolved]
  - Vein disorder [Recovered/Resolved]
  - Urticaria [Recovered/Resolved]
  - Blister [Recovered/Resolved]
  - Dyspnoea [Not Recovered/Not Resolved]
